FAERS Safety Report 7534423-9 (Version None)
Quarter: 2011Q2

REPORT INFORMATION
  Report Type: 
  Country: None (occurrence: None)
  Receive Date: 20110608
  Receipt Date: 20110531
  Transmission Date: 20111010
  Serious: Yes (Hospitalization, Disabling, Other)
  Sender: FDA-Public Use
  Company Number: US-MERCK-1008USA00567

PATIENT
  Age: 85 Year
  Sex: Female
  Weight: 56 kg

DRUGS (14)
  1. FOSAMAX [Suspect]
     Route: 048
     Dates: start: 20030901
  2. FOSAMAX [Suspect]
     Route: 048
     Dates: start: 20020424, end: 20030908
  3. FOSAMAX [Suspect]
     Route: 048
     Dates: start: 20030901
  4. FOSAMAX [Suspect]
     Route: 048
     Dates: start: 20000601, end: 20001201
  5. FOSAMAX [Suspect]
     Route: 048
     Dates: start: 20020424, end: 20030908
  6. POTASSIUM CHLORIDE [Concomitant]
     Route: 065
     Dates: start: 20040101
  7. FOSAMAX [Suspect]
     Route: 048
     Dates: start: 20051101, end: 20070101
  8. FOSAMAX [Suspect]
     Indication: OSTEOPOROSIS
     Route: 048
     Dates: start: 20001201, end: 20020401
  9. FOSAMAX [Suspect]
     Route: 048
     Dates: start: 20000601, end: 20001201
  10. FOSAMAX [Suspect]
     Route: 048
     Dates: start: 20051101, end: 20070101
  11. ACTONEL [Suspect]
     Indication: OSTEOPOROSIS
     Route: 065
     Dates: start: 20040501, end: 20051101
  12. FUROSEMIDE [Concomitant]
     Indication: FLUID RETENTION
     Route: 065
     Dates: start: 20040101
  13. AMIODARONE [Concomitant]
     Indication: ARRHYTHMIA
     Route: 065
     Dates: start: 20040101
  14. FOSAMAX [Suspect]
     Indication: OSTEOPENIA
     Route: 048
     Dates: start: 20001201, end: 20020401

REACTIONS (32)
  - CARDIAC FAILURE CONGESTIVE [None]
  - SPONDYLOLISTHESIS [None]
  - DYSPNOEA EXERTIONAL [None]
  - OSTEONECROSIS OF JAW [None]
  - EAR DISORDER [None]
  - OSTEONECROSIS [None]
  - DEPRESSION [None]
  - RADICULOPATHY [None]
  - PLEURISY [None]
  - WEIGHT DECREASED [None]
  - GINGIVAL SWELLING [None]
  - DENTAL FISTULA [None]
  - JAW DISORDER [None]
  - UPPER RESPIRATORY TRACT INFECTION [None]
  - FALL [None]
  - BENIGN BONE NEOPLASM [None]
  - PRESYNCOPE [None]
  - LACERATION [None]
  - ASTHENIA [None]
  - AORTIC STENOSIS [None]
  - CEREBRAL INFARCTION [None]
  - ABDOMINAL DISCOMFORT [None]
  - SCOLIOSIS [None]
  - ORAL INFECTION [None]
  - EXOSTOSIS [None]
  - ATRIAL FIBRILLATION [None]
  - INJURY [None]
  - SPINAL OSTEOARTHRITIS [None]
  - NEUROPATHY PERIPHERAL [None]
  - HYPOAESTHESIA [None]
  - INTERVERTEBRAL DISC DEGENERATION [None]
  - TRANSFUSION [None]
